FAERS Safety Report 6370534-1 (Version None)
Quarter: 2009Q3

REPORT INFORMATION
  Report Type: 
  Country: None (occurrence: None)
  Receive Date: 20090923
  Receipt Date: 20090917
  Transmission Date: 20100115
  Serious: Yes (Death)
  Sender: FDA-Public Use
  Company Number: A0807852A

PATIENT
  Age: 49 Year
  Sex: Female

DRUGS (2)
  1. TYKERB [Suspect]
     Dosage: 250MG UNKNOWN
     Route: 048
     Dates: start: 20090904
  2. HYDROCODONE [Concomitant]

REACTIONS (1)
  - DEATH [None]
